FAERS Safety Report 9257943 (Version 1)
Quarter: 2013Q2

REPORT INFORMATION
  Report Type: Spontaneous
  Country: IN (occurrence: None)
  Receive Date: 20130423
  Receipt Date: 20130423
  Transmission Date: 20140414
  Serious: Yes (Death)
  Sender: FDA-Public Use
  Company Number: CC400176586

PATIENT
  Age: 39 Year
  Sex: Male

DRUGS (2)
  1. CEFEPIME [Suspect]
     Indication: SEPSIS
  2. CEFEPIME [Suspect]

REACTIONS (1)
  - Status epilepticus [None]
